FAERS Safety Report 4579025-1 (Version None)
Quarter: 2005Q1

REPORT INFORMATION
  Report Type: 
  Country: None (occurrence: None)
  Receive Date: 20050211
  Receipt Date: 20050208
  Transmission Date: 20050727
  Serious: Yes (Life-Threatening, Hospitalization)
  Sender: FDA-Public Use
  Company Number: GB-MERCK-0502GBR00078

PATIENT
  Age: 73 Year
  Sex: Female

DRUGS (9)
  1. VIOXX [Suspect]
     Indication: RHEUMATOID ARTHRITIS
     Route: 048
     Dates: start: 20020516, end: 20040930
  2. CELECOXIB [Suspect]
     Indication: RHEUMATOID ARTHRITIS
     Route: 048
     Dates: start: 20041001, end: 20041231
  3. RISEDRONATE SODIUM [Concomitant]
     Indication: PROPHYLAXIS
     Route: 048
  4. QUININE [Concomitant]
     Indication: NIGHT CRAMPS
     Route: 048
  5. METHOTREXATE [Concomitant]
     Indication: RHEUMATOID ARTHRITIS
     Route: 048
  6. PREDNISOLONE [Concomitant]
     Indication: RHEUMATOID ARTHRITIS
     Route: 048
  7. FUROSEMIDE [Concomitant]
     Route: 048
  8. RANITIDINE [Concomitant]
     Route: 048
  9. ACETAMINOPHEN AND PROPOXYPHENE HYDROCHLORIDE [Concomitant]
     Route: 048

REACTIONS (1)
  - MYOCARDIAL INFARCTION [None]
